FAERS Safety Report 9999372 (Version 1)
Quarter: 2014Q1

REPORT INFORMATION
  Report Type: Spontaneous
  Country: US (occurrence: None)
  Receive Date: 20140311
  Receipt Date: 20140311
  Transmission Date: 20141002
  Serious: Yes (Hospitalization)
  Sender: FDA-Public Use
  Company Number: None

PATIENT
  Age: 60 Year
  Sex: Male
  Weight: 62.1 kg

DRUGS (1)
  1. ETODOLAC [Suspect]
     Route: 048
     Dates: start: 20120823, end: 20130708

REACTIONS (5)
  - Hepatic enzyme increased [None]
  - Jaundice [None]
  - Sputum discoloured [None]
  - Hepatic cirrhosis [None]
  - Unevaluable event [None]
